FAERS Safety Report 25831524 (Version 1)
Quarter: 2025Q3

REPORT INFORMATION
  Report Type: Spontaneous
  Country: US (occurrence: None)
  Receive Date: 20250918
  Receipt Date: 20250918
  Transmission Date: 20251021
  Serious: Yes (Death)
  Sender: FDA-CTU
  Company Number: None

PATIENT
  Sex: Female

DRUGS (6)
  1. REMICADE [Suspect]
     Active Substance: INFLIXIMAB
     Indication: Rheumatoid arthritis
     Route: 042
     Dates: start: 20230619
  2. NORMAL SALINE FLUSH (5ML) [Concomitant]
  3. BACTERIOSTATIC WATER MDV [Concomitant]
  4. STERILE WATER INJ (10ML/VL) [Concomitant]
  5. SODIUM CHLOR (250ML/BAG) [Concomitant]
  6. NORMAL SALINE FLUSH (10ML) [Concomitant]

REACTIONS (1)
  - Cerebrovascular accident [None]
